FAERS Safety Report 6378041-7 (Version None)
Quarter: 2009Q3

REPORT INFORMATION
  Report Type: 
  Country: None (occurrence: None)
  Receive Date: 20090925
  Receipt Date: 20090303
  Transmission Date: 20100115
  Serious: Yes (Disabling)
  Sender: FDA-Public Use
  Company Number: PHHY2009SG38385

PATIENT
  Sex: Male

DRUGS (3)
  1. GLEEVEC [Suspect]
     Indication: CHRONIC MYELOID LEUKAEMIA
     Dosage: 400 MG DAILY
     Route: 048
     Dates: start: 20060413
  2. NAPROXEN SODIUM [Concomitant]
     Indication: PAIN
     Dosage: PRN
  3. FAMOTIDINE [Concomitant]
     Dosage: 20 MG

REACTIONS (4)
  - CERVICAL MYELOPATHY [None]
  - GAIT DISTURBANCE [None]
  - SPINAL CORD INJURY [None]
  - WALKING AID USER [None]
